FAERS Safety Report 4781587-6 (Version None)
Quarter: 2005Q3

REPORT INFORMATION
  Report Type: 
  Country: None (occurrence: None)
  Receive Date: 20050927
  Receipt Date: 20050916
  Transmission Date: 20060218
  Serious: Yes (Other)
  Sender: FDA-Public Use
  Company Number: 2005120145

PATIENT
  Age: 48 Year
  Sex: Female

DRUGS (8)
  1. SERTRALINE HCL [Suspect]
     Indication: DEPRESSION
     Dosage: 75 MG (75 MG, 1 IN 1 D), ORAL
     Route: 048
     Dates: start: 20030101
  2. LITHIUM CARBONATE [Suspect]
     Indication: DEPRESSION
     Dosage: 1 GRAM (1 GRAM, 1 IN 1 D), ORAL
     Route: 048
     Dates: start: 20030101
  3. NORTRIPTYLINE HCL [Suspect]
     Indication: DEPRESSION
     Dosage: 200 MG (200 MG, 1 IN 1 D), ORAL
     Route: 048
     Dates: start: 20030101
  4. CLOZAPINE [Suspect]
     Indication: MAJOR DEPRESSION
     Dosage: 175 MG (175 MG, 1 IN 1 D), ORAL
     Route: 048
     Dates: start: 20050603
  5. HALOPERIDOL [Concomitant]
  6. ZOPICLONE (ZOPICLONE) [Concomitant]
  7. PROCYCLIDINE HYDROCHLORIDE 2MG TAB [Concomitant]
  8. THYROXINE (LEVOTHYROXINE) [Concomitant]

REACTIONS (2)
  - NEUTROPHIL COUNT DECREASED [None]
  - WHITE BLOOD CELL COUNT DECREASED [None]
